FAERS Safety Report 4288454-5 (Version None)
Quarter: 2004Q1

REPORT INFORMATION
  Report Type: 
  Country: None (occurrence: None)
  Receive Date: 20040205
  Receipt Date: 20040127
  Transmission Date: 20041129
  Serious: Yes (Death, Other)
  Sender: FDA-Public Use
  Company Number: USA_2003-0005290

PATIENT
  Age: 39 Year
  Sex: Male
  Weight: 78.5 kg

DRUGS (9)
  1. OXYCONTIN [Suspect]
     Indication: PAIN
     Dosage: SEE IMAGE
     Route: 048
     Dates: start: 20000406, end: 20000919
  2. OXYCONTIN [Suspect]
     Indication: PAIN
     Dosage: SEE IMAGE
     Route: 048
  3. HYDROCODONE BITARTRATE [Suspect]
  4. EFFEXOR [Suspect]
     Dosage: 37.5 MG, AM, ORAL
     Route: 048
     Dates: start: 20000823
  5. MIRTAZAPINE [Suspect]
  6. ALPRAZOLAM [Suspect]
  7. RELAFEN [Concomitant]
  8. NEURONTIN [Concomitant]
  9. PAN-MIST LA (GUAIFENESIN, PSEUDOEPHEDRINE HYDROCHLORIDE) [Concomitant]

REACTIONS (14)
  - BRAIN OEDEMA [None]
  - CHEST PAIN [None]
  - CONFUSIONAL STATE [None]
  - CONSTIPATION [None]
  - DISORIENTATION [None]
  - DRUG ABUSER [None]
  - DRUG DEPENDENCE [None]
  - DYSPHAGIA [None]
  - HEPATOMEGALY [None]
  - MEMORY IMPAIRMENT [None]
  - MULTIPLE DRUG OVERDOSE [None]
  - PAIN EXACERBATED [None]
  - PULMONARY OEDEMA [None]
  - SENSATION OF BLOCK IN EAR [None]
